FAERS Safety Report 6840206-5 (Version None)
Quarter: 2010Q3

REPORT INFORMATION
  Report Type: 
  Country: None (occurrence: None)
  Receive Date: 20100714
  Receipt Date: 20100504
  Transmission Date: 20110219
  Serious: Yes (Other)
  Sender: FDA-Public Use
  Company Number: PHHY2010US29207

PATIENT
  Sex: Female

DRUGS (3)
  1. RECLAST [Suspect]
     Route: 042
  2. MIACALCIN [Suspect]
  3. FOSAMAX [Suspect]

REACTIONS (4)
  - BODY HEIGHT DECREASED [None]
  - BODY TEMPERATURE INCREASED [None]
  - BONE PAIN [None]
  - MALAISE [None]
